FAERS Safety Report 21165999 (Version 9)
Quarter: 2022Q4

REPORT INFORMATION
  Report Type: Spontaneous
  Country: DE (occurrence: DE)
  Receive Date: 20220803
  Receipt Date: 20221109
  Transmission Date: 20230112
  Serious: Yes (Hospitalization, Disabling, Other)
  Sender: FDA-Public Use
  Company Number: DE-BRISTOL-MYERS SQUIBB COMPANY-2022-076611

PATIENT
  Age: 65 Year
  Sex: Male
  Weight: 67 kg

DRUGS (3)
  1. ABECMA [Suspect]
     Active Substance: IDECABTAGENE VICLEUCEL
     Indication: Plasma cell myeloma
     Dosage: DOSE: 486X10^6 CAR + T CELLS
     Route: 065
     Dates: start: 20220705
  2. CYCLOPHOSPHAMIDE [Concomitant]
     Active Substance: CYCLOPHOSPHAMIDE
     Indication: Product used for unknown indication
     Route: 065
     Dates: start: 20220630, end: 20220702
  3. FLUDARABINE [Concomitant]
     Active Substance: FLUDARABINE PHOSPHATE
     Indication: Product used for unknown indication
     Route: 065
     Dates: start: 20220630, end: 20220702

REACTIONS (3)
  - Cytokine release syndrome [Recovered/Resolved]
  - Compartment syndrome [Recovering/Resolving]
  - Post procedural haemorrhage [Unknown]

NARRATIVE: CASE EVENT DATE: 20220705
